FAERS Safety Report 24675486 (Version 2)
Quarter: 2024Q4

REPORT INFORMATION
  Report Type: Spontaneous
  Country: US (occurrence: US)
  Receive Date: 20241128
  Receipt Date: 20241128
  Transmission Date: 20250114
  Serious: Yes (Hospitalization, Other)
  Sender: ROCHE
  Company Number: US-ROCHE-10000135256

PATIENT
  Age: 29 Year
  Sex: Female

DRUGS (3)
  1. OCRELIZUMAB [Suspect]
     Active Substance: OCRELIZUMAB
     Indication: Relapsing-remitting multiple sclerosis
     Route: 065
  2. RITUXIMAB [Concomitant]
     Active Substance: RITUXIMAB
     Indication: Relapsing-remitting multiple sclerosis
     Route: 065
  3. DOXYCYCLINE [Concomitant]
     Active Substance: DOXYCYCLINE

REACTIONS (15)
  - COVID-19 [Unknown]
  - Ureaplasma infection [Unknown]
  - Renal abscess [Unknown]
  - Cystitis [Unknown]
  - Ureteritis [Unknown]
  - Pyelonephritis [Unknown]
  - Sepsis [Unknown]
  - Urinary tract abscess [Unknown]
  - Hypogammaglobulinaemia [Unknown]
  - Retroperitoneal abscess [Unknown]
  - Urinary bladder abscess [Unknown]
  - Candida infection [Unknown]
  - Thrombocytosis [Recovering/Resolving]
  - Leukocytosis [Recovered/Resolved]
  - Anaemia [Unknown]
